FAERS Safety Report 13181788 (Version 1)
Quarter: 2017Q1

REPORT INFORMATION
  Report Type: Spontaneous
  Country: US (occurrence: US)
  Receive Date: 20170202
  Receipt Date: 20170202
  Transmission Date: 20170428
  Serious: No
  Sender: FDA-Public Use
  Company Number: US-B.I. PHARMACEUTICALS,INC./RIDGEFIELD-2017-BI-004471

PATIENT
  Sex: Female
  Weight: 63.5 kg

DRUGS (22)
  1. MULTIVITAMIN [Concomitant]
     Active Substance: VITAMINS
     Indication: ROUTINE HEALTH MAINTENANCE
     Dates: start: 20100726
  2. VITAMIN E [Concomitant]
     Active Substance: .ALPHA.-TOCOPHEROL
     Indication: ROUTINE HEALTH MAINTENANCE
     Route: 048
     Dates: start: 20110307
  3. PANTOPRAZOLE SODIUM. [Concomitant]
     Active Substance: PANTOPRAZOLE SODIUM
     Indication: OESOPHAGITIS
  4. LUTEIN-ZEAXANTHIN [Concomitant]
     Indication: MACULAR DEGENERATION
     Dosage: DOSE: 6-1 MG
     Route: 048
     Dates: start: 20110307
  5. SPIRIVA [Suspect]
     Active Substance: TIOTROPIUM BROMIDE MONOHYDRATE
     Indication: PRODUCT USED FOR UNKNOWN INDICATION
     Route: 065
  6. AZELASTINE HCL [Concomitant]
     Active Substance: AZELASTINE HYDROCHLORIDE
     Indication: SEASONAL ALLERGY
     Route: 045
     Dates: start: 20110713
  7. PANTOPRAZOLE SODIUM. [Concomitant]
     Active Substance: PANTOPRAZOLE SODIUM
     Indication: GASTROOESOPHAGEAL REFLUX DISEASE
     Dosage: FREQUENCY: TAKE 1 TABLET 30 MINUTES BEFORE BREAKFAST DAILY
     Route: 048
     Dates: start: 20160401
  8. FLAXSEED [Concomitant]
     Active Substance: FLAX SEED
     Indication: ROUTINE HEALTH MAINTENANCE
     Route: 048
     Dates: start: 20110307
  9. BETA CAROTENE [Concomitant]
     Indication: ROUTINE HEALTH MAINTENANCE
     Route: 048
     Dates: start: 20110307
  10. LYRICA [Concomitant]
     Active Substance: PREGABALIN
     Indication: NEUROPATHY PERIPHERAL
     Route: 048
     Dates: start: 20150402
  11. DIPHENOXYLATE-ATROPINE [Concomitant]
     Indication: DIARRHOEA
     Dosage: STRENGTH: 2.5-0.025 MG FREQUENCY: TAKE ONE (1) TABLET BY MOUTH AFTER EACH LOOSE STOOL DO NOT EXCEED
     Route: 048
     Dates: start: 20111117
  12. CALCIUM [Concomitant]
     Active Substance: CALCIUM
     Indication: ROUTINE HEALTH MAINTENANCE
     Route: 048
     Dates: start: 20100301
  13. LIDOCAINE 5% [Concomitant]
     Active Substance: LIDOCAINE
     Indication: INTERVERTEBRAL DISC DISORDER
  14. ATORVASTATIN CALCIUM. [Concomitant]
     Active Substance: ATORVASTATIN CALCIUM
     Indication: TYPE V HYPERLIPIDAEMIA
     Route: 048
     Dates: start: 20131202
  15. LOSARTAN POTASSIUM. [Concomitant]
     Active Substance: LOSARTAN POTASSIUM
     Indication: ESSENTIAL HYPERTENSION
     Route: 048
     Dates: start: 20160718
  16. METOPROLOL TARTRATE. [Concomitant]
     Active Substance: METOPROLOL TARTRATE
     Indication: ESSENTIAL HYPERTENSION
     Route: 048
     Dates: start: 20160401
  17. MAGNESIUM OXIDE. [Concomitant]
     Active Substance: MAGNESIUM OXIDE
     Indication: ROUTINE HEALTH MAINTENANCE
     Route: 048
     Dates: start: 20110113
  18. VITAMIN D3 [Concomitant]
     Active Substance: CHOLECALCIFEROL
     Indication: ROUTINE HEALTH MAINTENANCE
     Route: 048
     Dates: start: 20100726
  19. LIDOCAINE 5% [Concomitant]
     Active Substance: LIDOCAINE
     Indication: BACK PAIN
     Dosage: FREQ: APPLY UP TO 3 PATCHES TO THE AFFECTED AREAS AND LEAVE IN PLACE FOR 12 HOURS, THEN REMOVE AND L
     Route: 065
     Dates: start: 20131211
  20. VITAMIN C [Concomitant]
     Active Substance: ASCORBIC ACID
     Indication: ROUTINE HEALTH MAINTENANCE
     Route: 048
     Dates: start: 20100726
  21. LEVOTHYROXINE SODIUM. [Concomitant]
     Active Substance: LEVOTHYROXINE SODIUM
     Indication: HYPOTHYROIDISM
     Route: 048
     Dates: start: 20100512
  22. ASPIR 81 [Concomitant]
     Indication: CAROTID ARTERIOSCLEROSIS
     Route: 048
     Dates: start: 20111011

REACTIONS (1)
  - Sneezing [Unknown]
